FAERS Safety Report 15767958 (Version 1)
Quarter: 2018Q4

REPORT INFORMATION
  Report Type: Spontaneous
  Country: GB (occurrence: GB)
  Receive Date: 20181227
  Receipt Date: 20181227
  Transmission Date: 20190205
  Serious: Yes (Death)
  Sender: FDA-Public Use
  Company Number: PHHY2013GB042626

PATIENT
  Age: 52 Year
  Sex: Female

DRUGS (6)
  1. TRASTUZUMAB. [Concomitant]
     Active Substance: TRASTUZUMAB
     Indication: BREAST CANCER
     Dosage: 441 MG, TIW
     Route: 042
     Dates: start: 20130226
  2. DOCETAXEL. [Suspect]
     Active Substance: DOCETAXEL
     Dosage: 160 MG, TIW
     Route: 042
     Dates: start: 20130404
  3. DOCETAXEL. [Suspect]
     Active Substance: DOCETAXEL
     Indication: BREAST CANCER
     Dosage: 160 MG, TIW
     Route: 042
     Dates: start: 20130226
  4. PERTUZUMAB. [Concomitant]
     Active Substance: PERTUZUMAB
     Indication: BREAST CANCER
     Dosage: 840 MG, ONCE/SINGLE
     Route: 042
     Dates: start: 20130226, end: 20130226
  5. PERTUZUMAB. [Concomitant]
     Active Substance: PERTUZUMAB
     Dosage: 420 MG, TIW
     Route: 042
     Dates: start: 20130404
  6. PERTUZUMAB. [Concomitant]
     Active Substance: PERTUZUMAB
     Dosage: 420 MG, TIW
     Route: 042
     Dates: start: 20130319

REACTIONS (4)
  - Vomiting [Unknown]
  - Abdominal pain [Unknown]
  - Sepsis [Fatal]
  - Back pain [Unknown]

NARRATIVE: CASE EVENT DATE: 20130403
